FAERS Safety Report 8300959-6 (Version None)
Quarter: 2012Q2

REPORT INFORMATION
  Report Type: 
  Country: None (occurrence: None)
  Receive Date: 20120420
  Receipt Date: 20120412
  Transmission Date: 20120825
  Serious: Yes (Hospitalization)
  Sender: FDA-Public Use
  Company Number: US-BAYER-2012-011512

PATIENT
  Age: 20 Year
  Sex: Female
  Weight: 45.351 kg

DRUGS (10)
  1. IBUPROFEN (ADVIL) [Concomitant]
     Indication: PAIN
     Dosage: AS DIRECTED
  2. PAXIL [Concomitant]
     Dosage: 20 MG, DAILY
     Route: 048
     Dates: start: 20081126, end: 20090114
  3. PRISTIQ [Concomitant]
     Dosage: 50 MG, DAILY
     Route: 048
     Dates: start: 20080918, end: 20100219
  4. FISH OIL [Concomitant]
     Dosage: 1000 MG, DAILY
     Dates: start: 20090113, end: 20090219
  5. FISH OIL [Concomitant]
     Dosage: 1000 MG, DAILY
     Route: 048
     Dates: start: 20090113, end: 20090219
  6. IBUPROFEN [Concomitant]
     Dosage: 200 TO 800 MG TID
     Route: 048
     Dates: start: 20080108, end: 20090113
  7. ACIPHEX [Concomitant]
     Dosage: 20 MG, DAILY
     Dates: start: 20080318, end: 20090307
  8. PERCOCET [Concomitant]
  9. YAZ [Suspect]
     Indication: CONTRACEPTION
     Dosage: UNK
     Dates: start: 20060601, end: 20091201
  10. NIACIN [Concomitant]
     Dosage: 500 TO 2000 MG DAILY
     Route: 048
     Dates: start: 20090106, end: 20090330

REACTIONS (2)
  - CHOLECYSTITIS CHRONIC [None]
  - PAIN [None]
